FAERS Safety Report 7259235-5 (Version None)
Quarter: 2011Q1

REPORT INFORMATION
  Report Type: 
  Country: None (occurrence: None)
  Receive Date: 20110129
  Receipt Date: 20100813
  Transmission Date: 20110831
  Serious: No
  Sender: FDA-Public Use
  Company Number: US-ABBOTT-10P-163-0663953-00

PATIENT
  Age: 48 Year
  Sex: Female

DRUGS (6)
  1. LOPID [Concomitant]
     Indication: BLOOD CHOLESTEROL INCREASED
  2. HUMIRA [Suspect]
     Indication: CROHN'S DISEASE
     Dates: start: 20100608
  3. WELLBUTRIN [Concomitant]
     Indication: DEPRESSION
  4. PROZAC [Concomitant]
     Indication: DEPRESSION
  5. ATIVAN [Concomitant]
     Indication: ANXIETY
  6. AMBIEN [Concomitant]
     Indication: INSOMNIA

REACTIONS (1)
  - LOCALISED INFECTION [None]
